FAERS Safety Report 8304889-5 (Version None)
Quarter: 2012Q2

REPORT INFORMATION
  Report Type: 
  Country: None (occurrence: None)
  Receive Date: 20120423
  Receipt Date: 20120412
  Transmission Date: 20120825
  Serious: Yes (Hospitalization)
  Sender: FDA-Public Use
  Company Number: GB-ROCHE-1058955

PATIENT
  Age: 67 Year
  Sex: Male

DRUGS (12)
  1. FOLIC ACID [Concomitant]
     Route: 048
     Dates: start: 20111101
  2. OMEPRAZOLE [Concomitant]
     Route: 048
  3. RAMIPRIL [Concomitant]
     Route: 048
  4. LOPERAMIDE [Concomitant]
     Route: 048
     Dates: start: 20111201
  5. ASPIRIN [Concomitant]
     Route: 048
  6. FUROSEMIDE [Concomitant]
     Route: 048
  7. GALFER [Concomitant]
     Route: 048
     Dates: start: 20111101
  8. ATENOLOL [Concomitant]
     Route: 048
  9. ATORVASTATIN [Concomitant]
     Route: 048
  10. ACETAMINOPHEN [Concomitant]
     Route: 048
     Dates: start: 20111101
  11. ZOPICLONE [Concomitant]
     Route: 048
     Dates: start: 20111101
  12. CAPECITABINE [Suspect]
     Indication: COLON CANCER
     Dosage: 2150 MG
     Route: 048
     Dates: start: 20120316

REACTIONS (6)
  - ATRIAL FIBRILLATION [None]
  - CHEST PAIN [None]
  - HYPOTENSION [None]
  - PALPITATIONS [None]
  - TROPONIN I INCREASED [None]
  - ACUTE CORONARY SYNDROME [None]
